FAERS Safety Report 6997527-5 (Version None)
Quarter: 2010Q3

REPORT INFORMATION
  Report Type: 
  Country: None (occurrence: None)
  Receive Date: 20100918
  Receipt Date: 20091021
  Transmission Date: 20110219
  Serious: No
  Sender: FDA-Public Use
  Company Number: US-WYE-H11736309

PATIENT
  Sex: Female
  Weight: 59.93 kg

DRUGS (3)
  1. PRISTIQ [Suspect]
     Indication: MAJOR DEPRESSION
     Route: 048
     Dates: start: 20090901
  2. ZOMIG [Concomitant]
  3. TRAZODONE HCL [Concomitant]

REACTIONS (8)
  - AGITATION [None]
  - CONDITION AGGRAVATED [None]
  - HYPERHIDROSIS [None]
  - INSOMNIA [None]
  - LOSS OF LIBIDO [None]
  - NERVOUSNESS [None]
  - NIGHTMARE [None]
  - TREMOR [None]
